FAERS Safety Report 19167127 (Version 2)
Quarter: 2021Q2

REPORT INFORMATION
  Report Type: Spontaneous
  Country: JP (occurrence: JP)
  Receive Date: 20210422
  Receipt Date: 20210531
  Transmission Date: 20210717
  Serious: Yes (Other)
  Sender: FDA-Public Use
  Company Number: NVSJ2021JP006112

PATIENT
  Age: 79 Year
  Sex: Male

DRUGS (9)
  1. AZOSEMIDE [Concomitant]
     Active Substance: AZOSEMIDE
     Indication: PRODUCT USED FOR UNKNOWN INDICATION
     Dosage: 30 MG
     Route: 065
  2. TOLVAPTAN [Concomitant]
     Active Substance: TOLVAPTAN
     Dosage: 15 MG
     Route: 065
  3. FUROSEMIDE. [Concomitant]
     Active Substance: FUROSEMIDE
     Indication: PRODUCT USED FOR UNKNOWN INDICATION
     Dosage: 40 MG
     Route: 042
  4. FUROSEMIDE. [Concomitant]
     Active Substance: FUROSEMIDE
     Dosage: 40 MG
     Route: 048
  5. FUROSEMIDE. [Concomitant]
     Active Substance: FUROSEMIDE
     Dosage: 100 MG
     Route: 041
  6. DAPAGLIFLOZIN. [Concomitant]
     Active Substance: DAPAGLIFLOZIN
     Indication: PRODUCT USED FOR UNKNOWN INDICATION
     Dosage: 5 MG
     Route: 065
  7. ENTRESTO [Suspect]
     Active Substance: SACUBITRIL\VALSARTAN
     Indication: CARDIAC FAILURE CHRONIC
     Dosage: 50 MG, BID
     Route: 048
     Dates: start: 20201015, end: 20201101
  8. TOLVAPTAN [Concomitant]
     Active Substance: TOLVAPTAN
     Indication: PRODUCT USED FOR UNKNOWN INDICATION
     Dosage: 7.5 MG
     Route: 065
  9. AZOSEMIDE [Concomitant]
     Active Substance: AZOSEMIDE
     Dosage: 30 MG
     Route: 065

REACTIONS (5)
  - Blood creatinine increased [Unknown]
  - Renal impairment [Unknown]
  - Sinus arrest [Unknown]
  - Malaise [Unknown]
  - Glomerular filtration rate decreased [Unknown]

NARRATIVE: CASE EVENT DATE: 20201106
